FAERS Safety Report 22239328 (Version 3)
Quarter: 2023Q2

REPORT INFORMATION
  Report Type: Spontaneous
  Country: BE (occurrence: None)
  Receive Date: 20230421
  Receipt Date: 20230608
  Transmission Date: 20230721
  Serious: Yes (Hospitalization, Other)
  Sender: FDA-Public Use
  Company Number: 2023A087138

PATIENT
  Age: 84 Year
  Sex: Male

DRUGS (42)
  1. DAPAGLIFLOZIN [Suspect]
     Active Substance: DAPAGLIFLOZIN
     Indication: Cardiac failure
     Dosage: 10 MG QD PO
     Route: 048
     Dates: start: 20220330, end: 20230310
  2. BISOPROLOL [Suspect]
     Active Substance: BISOPROLOL
     Indication: Hypertension
     Dosage: 5 MG QD PO
     Route: 048
     Dates: start: 20230303, end: 20230310
  3. BISOPROLOL [Suspect]
     Active Substance: BISOPROLOL
     Indication: Hypertension
     Dosage: 5 MG QD PO
     Route: 048
     Dates: start: 20230227
  4. BUMETANIDE [Suspect]
     Active Substance: BUMETANIDE
     Indication: Cardiac failure
     Dosage: 0.5 MG QD PO
     Route: 048
     Dates: start: 20220517, end: 20230310
  5. BUMETANIDE [Suspect]
     Active Substance: BUMETANIDE
     Indication: Compensation neurosis
     Dosage: 0.5 MG QD PO
     Route: 048
     Dates: start: 20220517, end: 20230310
  6. BUMETANIDE [Suspect]
     Active Substance: BUMETANIDE
     Indication: Cardiac failure
     Dosage: 1 MG QD PO
     Route: 048
     Dates: start: 20220401, end: 20220516
  7. BUMETANIDE [Suspect]
     Active Substance: BUMETANIDE
     Indication: Compensation neurosis
     Dosage: 1 MG QD PO
     Route: 048
     Dates: start: 20220401, end: 20220516
  8. BUMETANIDE [Suspect]
     Active Substance: BUMETANIDE
     Indication: Cardiac failure
     Dosage: 2 MG ONCE IV
     Route: 042
     Dates: start: 20230308
  9. BUMETANIDE [Suspect]
     Active Substance: BUMETANIDE
     Indication: Compensation neurosis
     Dosage: 2 MG ONCE IV
     Route: 042
     Dates: start: 20230308
  10. ACORAMIDIS [Suspect]
     Active Substance: ACORAMIDIS
     Indication: Product used for unknown indication
     Dates: start: 20220816
  11. SPIRONOLACTONE [Suspect]
     Active Substance: SPIRONOLACTONE
     Indication: Left ventricular hypertrophy
     Dosage: 25 MG, 1X/DAY
     Route: 048
     Dates: start: 201712, end: 20230310
  12. ACETYLCYSTEINE [Concomitant]
     Active Substance: ACETYLCYSTEINE
     Indication: Cough
     Dosage: 600 MG DAILY (QD)
     Route: 048
     Dates: start: 20191125
  13. FOLIC ACID [Concomitant]
     Active Substance: FOLIC ACID
     Indication: Product used for unknown indication
     Dosage: 4 MG QD PO
     Dates: start: 20230302
  14. FOLIC ACID [Concomitant]
     Active Substance: FOLIC ACID
     Indication: Folate deficiency
     Dosage: 4 MG QD PO
     Dates: start: 20230302
  15. EDOXABAN TOSYLATE [Concomitant]
     Active Substance: EDOXABAN TOSYLATE
     Indication: Product used for unknown indication
     Dosage: 30 MG, 1X/DAY FOR AN UNREPORTED
     Dates: start: 20230306, end: 20230310
  16. EDOXABAN TOSYLATE [Concomitant]
     Active Substance: EDOXABAN TOSYLATE
     Indication: Atrial fibrillation
     Dosage: 30 MG, 1X/DAY FOR AN UNREPORTED
     Dates: start: 20230306, end: 20230310
  17. ENTRESTO [Concomitant]
     Active Substance: SACUBITRIL\VALSARTAN
     Indication: Product used for unknown indication
     Dates: end: 20230310
  18. CORDARONE [Concomitant]
     Active Substance: AMIODARONE HYDROCHLORIDE
     Indication: Product used for unknown indication
     Dosage: 200 MG QD PO
     Route: 048
     Dates: start: 20230309
  19. CORDARONE [Concomitant]
     Active Substance: AMIODARONE HYDROCHLORIDE
     Indication: Atrial fibrillation
     Dosage: 200 MG QD PO
     Route: 048
     Dates: start: 20230309
  20. CORDARONE [Concomitant]
     Active Substance: AMIODARONE HYDROCHLORIDE
     Indication: Product used for unknown indication
     Route: 042
     Dates: start: 20230309
  21. CORDARONE [Concomitant]
     Active Substance: AMIODARONE HYDROCHLORIDE
     Indication: Atrial fibrillation
     Route: 042
     Dates: start: 20230309
  22. TAMSULOSIN HYDROCHLORIDE [Concomitant]
     Active Substance: TAMSULOSIN HYDROCHLORIDE
     Indication: Benign prostatic hyperplasia
     Dosage: 0.4 MG QD PO0.4MG UNKNOWN
     Route: 048
     Dates: end: 2009
  23. PANTOMED [Concomitant]
     Indication: Prophylaxis against gastrointestinal ulcer
     Dosage: 40 MG QD PO
     Route: 048
     Dates: start: 2009
  24. SIMVASTATIN [Concomitant]
     Active Substance: SIMVASTATIN
     Indication: Hypercholesterolaemia
     Dosage: 20 MG QD PO
     Route: 048
     Dates: start: 2017
  25. IMODIUM [Concomitant]
     Active Substance: LOPERAMIDE HYDROCHLORIDE
     Indication: Diarrhoea
     Dosage: 2 MG QD PO
     Route: 048
     Dates: start: 20230109, end: 20230114
  26. IMODIUM [Concomitant]
     Active Substance: LOPERAMIDE HYDROCHLORIDE
     Indication: Diarrhoea
     Dosage: 2 MG PRN PO
     Route: 048
     Dates: start: 20230115
  27. PFIZER COVID-19 VACCINE 1 INJECTION [Concomitant]
     Indication: COVID-19
     Route: 058
     Dates: start: 20210505
  28. DIAMOX SEQUELS [Concomitant]
     Active Substance: ACETAZOLAMIDE
     Indication: Compensation neurosis
     Route: 042
     Dates: start: 20230308
  29. ALIZAPRIDE HYDROCHLORIDE [Concomitant]
     Active Substance: ALIZAPRIDE HYDROCHLORIDE
     Indication: Nausea
     Dosage: FOR NAUSEA AFTER PACEMAKER IMPLANTATION
     Route: 042
     Dates: start: 20230302
  30. ACORAMIDIS [Concomitant]
     Active Substance: ACORAMIDIS
     Indication: Product used for unknown indication
     Dosage: LAST DOSE PRIOR TO ONSET OF THE EVENT ON 09MAR2023
     Route: 001
  31. ISOPROTERENOL HYDROCHLORIDE [Concomitant]
     Active Substance: ISOPROTERENOL HYDROCHLORIDE
     Indication: Bradycardia
     Dosage: 0.2 MG/ML IV0.2MG/ML
     Route: 042
     Dates: start: 20230227, end: 20230228
  32. MAGNESIUM [Concomitant]
     Active Substance: MAGNESIUM
     Indication: Magnesium deficiency
     Dosage: DOSAGE: 3 GRAM 3G QD IV
     Route: 042
     Dates: start: 20230302, end: 20230303
  33. ENTRESTO [Concomitant]
     Active Substance: SACUBITRIL\VALSARTAN
     Indication: Cardiac failure
     Dosage: (SACUBITRIL 24MG)/(VALSARTAN 26MG), AN UNREPORTED INDICATION 0.5 CO TWICE DAILY
     Route: 048
     Dates: start: 20230309, end: 20230310
  34. ENOXAPARIN SODIUM [Concomitant]
     Active Substance: ENOXAPARIN SODIUM
     Indication: Thrombosis
     Route: 058
  35. FENTANYL [Concomitant]
     Active Substance: FENTANYL
     Indication: Sedation
     Dosage: FOR SEDATION DURING PACEMAKER IMPLANTATION
     Route: 042
     Dates: start: 20230301
  36. CEFAZOLIN SODIUM [Concomitant]
     Active Substance: CEFAZOLIN SODIUM
     Indication: Sedation
     Dosage: DOSAGE: 2 GRAM FOR SEDATION DURING PACEMAKER IMPLANTATION
     Route: 042
  37. PROPOFOL [Concomitant]
     Active Substance: PROPOFOL
     Indication: Sedation
     Dosage: FOR SEDATION FOR CARDIOVERSION
     Route: 042
     Dates: start: 20230309
  38. ASPIRIN [Concomitant]
     Active Substance: ASPIRIN
     Indication: Thrombosis prophylaxis
     Dosage: 80 MG QD PO
     Route: 048
     Dates: start: 2015, end: 20230305
  39. TRAMADOL HYDROCHLORIDE [Concomitant]
     Active Substance: TRAMADOL HYDROCHLORIDE
     Indication: Pain
     Dosage: FOR PAIN AFTER PACEMAKER IMPLANTATION
     Route: 042
     Dates: start: 20230302
  40. MOMETASONE [Concomitant]
     Active Substance: MOMETASONE
     Indication: Rhinitis prophylaxis
     Route: 045
     Dates: start: 20220214
  41. PROSHIELD [Concomitant]
     Indication: Skin irritation
     Route: 061
     Dates: start: 20230309
  42. COMIRNATY [Concomitant]
     Active Substance: TOZINAMERAN

REACTIONS (3)
  - Acute kidney injury [Recovered/Resolved]
  - Atrial fibrillation [Recovered/Resolved]
  - Atrioventricular block [Recovered/Resolved]

NARRATIVE: CASE EVENT DATE: 20230227
